FAERS Safety Report 16175959 (Version 2)
Quarter: 2020Q4

REPORT INFORMATION
  Report Type: Spontaneous
  Country: DE (occurrence: DE)
  Receive Date: 20190409
  Receipt Date: 20201209
  Transmission Date: 20210113
  Serious: Yes (Hospitalization)
  Sender: FDA-Public Use
  Company Number: DE-JNJFOC-20190305744

PATIENT
  Age: 62 Year
  Sex: Male
  Weight: 71 kg

DRUGS (3)
  1. TREMFYA [Suspect]
     Active Substance: GUSELKUMAB
  2. TREMFYA [Suspect]
     Active Substance: GUSELKUMAB
     Indication: PSORIASIS
     Route: 065
     Dates: start: 20180308
  3. TREMFYA [Suspect]
     Active Substance: GUSELKUMAB

REACTIONS (5)
  - Adverse event [Unknown]
  - Skin disorder [Unknown]
  - Therapeutic response shortened [Unknown]
  - Off label use [Unknown]
  - Prescribed overdose [Unknown]
